FAERS Safety Report 25373226 (Version 2)
Quarter: 2025Q2

REPORT INFORMATION
  Report Type: Spontaneous
  Country: FR (occurrence: FR)
  Receive Date: 20250529
  Receipt Date: 20250627
  Transmission Date: 20250716
  Serious: Yes (Disabling)
  Sender: ELI LILLY AND COMPANY
  Company Number: None

PATIENT
  Age: 65 Year
  Sex: Male
  Weight: 64 kg

DRUGS (22)
  1. ALIMTA [Suspect]
     Active Substance: PEMETREXED DISODIUM
     Indication: Lung adenocarcinoma
     Route: 042
     Dates: start: 20250306, end: 20250306
  2. ALIMTA [Suspect]
     Active Substance: PEMETREXED DISODIUM
     Route: 042
     Dates: start: 20250403, end: 20250403
  3. ALIMTA [Suspect]
     Active Substance: PEMETREXED DISODIUM
     Route: 042
     Dates: start: 20250512
  4. CARBOPLATIN [Suspect]
     Active Substance: CARBOPLATIN
     Indication: Lung adenocarcinoma
     Route: 042
     Dates: start: 20250306, end: 20250306
  5. CARBOPLATIN [Suspect]
     Active Substance: CARBOPLATIN
     Route: 042
     Dates: start: 20250403, end: 20250403
  6. CARBOPLATIN [Suspect]
     Active Substance: CARBOPLATIN
     Route: 042
     Dates: start: 20250512
  7. PREDNISONE [Suspect]
     Active Substance: PREDNISONE
     Indication: Behcet^s syndrome
     Dosage: 15 MG, DAILY
     Route: 048
     Dates: start: 201806
  8. PREDNISONE [Suspect]
     Active Substance: PREDNISONE
     Dosage: 80 MG, DAILY EVERY MORNING
     Route: 048
     Dates: start: 202501
  9. PREDNISONE [Suspect]
     Active Substance: PREDNISONE
     Dosage: 60 MG, DAILY EVERY MORNING
     Route: 048
     Dates: start: 20250512
  10. METHYLPREDNISOLONE HEMISUCCINATE [Suspect]
     Active Substance: METHYLPREDNISOLONE HEMISUCCINATE
     Indication: Behcet^s syndrome
     Dosage: 120 MG, DAILY
     Route: 042
     Dates: start: 20250128, end: 20250201
  11. BUDESONIDE [Suspect]
     Active Substance: BUDESONIDE
     Indication: NSAID exacerbated respiratory disease
     Dosage: 1 DOSAGE FORM, DAILY
     Route: 055
     Dates: start: 201711
  12. COLCHICINE [Concomitant]
     Active Substance: COLCHICINE
     Indication: Behcet^s syndrome
  13. RAMIPRIL HYDROCHLOROTHIAZIDE RATIOPHARM [Concomitant]
     Indication: Product used for unknown indication
     Dosage: 1 TABLET IN THE MORNING
     Route: 048
  14. METHOTREXATE [Concomitant]
     Active Substance: METHOTREXATE
     Indication: Product used for unknown indication
     Dosage: 20 MG, ONCE A WEEK ON TUESDAY
     Route: 048
  15. FOLIC ACID [Concomitant]
     Active Substance: FOLIC ACID
     Indication: Product used for unknown indication
     Dosage: 10 MG, (2 TABLETS IN THE MORNING EVERY THURSDAY)
     Route: 048
  16. RUPATADINE [Concomitant]
     Active Substance: RUPATADINE
     Indication: Product used for unknown indication
     Dosage: 10 MG, DAILY (1 TABLET IN THE MORNING)
     Route: 048
  17. SERETIDE [Concomitant]
     Active Substance: FLUTICASONE PROPIONATE\SALMETEROL XINAFOATE
     Indication: Product used for unknown indication
     Dosage: 4 DOSAGE FORM, DAILY (2 PUFFS MORNING AND EVENING)
  18. ACETAMINOPHEN [Concomitant]
     Active Substance: ACETAMINOPHEN
     Indication: Product used for unknown indication
     Route: 048
  19. CICLOPIROX OLAMINE [Concomitant]
     Active Substance: CICLOPIROX OLAMINE
     Indication: Product used for unknown indication
     Dosage: 1 DOSAGE FORM, WEEKLY (1/W) (1 BOTTLE PER MONTH AND 1 SHAMPOO PER WEEK WHEN TREATING THE FACE)
     Route: 061
  20. BUDESONIDE [Concomitant]
     Active Substance: BUDESONIDE
     Indication: Product used for unknown indication
     Dosage: 1 DOSAGE FORM, DAILY
  21. BACTRIM [Concomitant]
     Active Substance: SULFAMETHOXAZOLE\TRIMETHOPRIM
     Indication: Product used for unknown indication
     Dosage: 800 MG, DAILY EVERY MORNING
     Route: 048
  22. BACTRIM [Concomitant]
     Active Substance: SULFAMETHOXAZOLE\TRIMETHOPRIM
     Dosage: 800 MG, DAILY MORNING AND EVENING
     Route: 048
     Dates: start: 20250327, end: 20250403

REACTIONS (1)
  - Tendon rupture [Not Recovered/Not Resolved]

NARRATIVE: CASE EVENT DATE: 20250405
